FAERS Safety Report 21990299 (Version 1)
Quarter: 2023Q1

REPORT INFORMATION
  Report Type: Spontaneous
  Country: AU (occurrence: AU)
  Receive Date: 20230214
  Receipt Date: 20230214
  Transmission Date: 20230417
  Serious: Yes (Other)
  Sender: FDA-Public Use
  Company Number: AU-009507513-2302AUS003766

PATIENT
  Age: 69 Year
  Sex: Female
  Weight: 110 kg

DRUGS (1)
  1. ZERBAXA [Suspect]
     Active Substance: CEFTOLOZANE SULFATE\TAZOBACTAM SODIUM
     Indication: Pathogen resistance
     Dosage: 2.25 G LOAD WITH 450MG Q 8 HOURLY

REACTIONS (2)
  - Critical illness [Unknown]
  - Drug ineffective [Unknown]
